FAERS Safety Report 18156851 (Version 1)
Quarter: 2020Q3

REPORT INFORMATION
  Report Type: Other
  Country: AR (occurrence: AR)
  Receive Date: 20200817
  Receipt Date: 20200817
  Transmission Date: 20201103
  Serious: Yes (Hospitalization, Other)
  Sender: FDA-Public Use
  Company Number: AR-ROCHE-1741648

PATIENT
  Age: 66 Year
  Sex: Female

DRUGS (3)
  1. XOLAIR [Suspect]
     Active Substance: OMALIZUMAB
     Indication: ASTHMA
     Route: 065
     Dates: start: 2013
  2. BUDESONIDE;FORMOTEROL [Concomitant]
     Active Substance: BUDESONIDE\FORMOTEROL
     Indication: PRODUCT USED FOR UNKNOWN INDICATION
     Route: 065
  3. XOLAIR [Suspect]
     Active Substance: OMALIZUMAB
     Dosage: 150 MG, QMO (ONCE MONTHLY)
     Route: 058
     Dates: start: 20130322

REACTIONS (9)
  - Dyspnoea [Unknown]
  - Blood glucose decreased [Unknown]
  - Lung disorder [Recovering/Resolving]
  - Fall [Unknown]
  - Dizziness [Unknown]
  - Syncope [Recovering/Resolving]
  - Post procedural complication [Recovering/Resolving]
  - Benign pancreatic neoplasm [Recovered/Resolved]
  - Malaise [Unknown]

NARRATIVE: CASE EVENT DATE: 2016
